FAERS Safety Report 5637628-7 (Version None)
Quarter: 2008Q1

REPORT INFORMATION
  Report Type: 
  Country: None (occurrence: None)
  Receive Date: 20080225
  Receipt Date: 20080220
  Transmission Date: 20080703
  Serious: Yes (Death, Hospitalization, Other)
  Sender: FDA-Public Use
  Company Number: BR-ABBOTT-08P-020-0437354-00

PATIENT
  Sex: Female
  Weight: 71 kg

DRUGS (10)
  1. HUMIRA [Suspect]
     Indication: RHEUMATOID ARTHRITIS
     Route: 058
     Dates: start: 20070601, end: 20071201
  2. ISOSORBIDE MONONITRATE [Concomitant]
     Indication: HYPERTENSION
  3. PROPRANOLOL [Concomitant]
     Indication: HYPERTENSION
  4. DILTIAZEM [Concomitant]
     Indication: HYPERTENSION
  5. UNSPECIFIED MEDICATION [Concomitant]
     Indication: HYPERTENSION
  6. PREDNISONE TAB [Concomitant]
     Indication: RHEUMATOID ARTHRITIS
     Route: 048
  7. INSULIN [Concomitant]
     Indication: DIABETES MELLITUS
     Route: 048
  8. UNSPECIFIED MEDICATION [Concomitant]
     Indication: HEPATITIS C
  9. CORTICOID [Concomitant]
     Indication: RHEUMATOID ARTHRITIS
  10. METAMIZOLE SODIUM [Concomitant]
     Indication: PAIN

REACTIONS (18)
  - BLADDER DISORDER [None]
  - BLOOD POTASSIUM DECREASED [None]
  - BLOOD SODIUM DECREASED [None]
  - CHOLECYSTITIS ACUTE [None]
  - CONVULSION [None]
  - DIZZINESS [None]
  - DRUG INEFFECTIVE [None]
  - ERYTHEMA [None]
  - FALL [None]
  - HEAD INJURY [None]
  - INJURY [None]
  - MULTI-ORGAN FAILURE [None]
  - PLATELET COUNT DECREASED [None]
  - PNEUMONIA [None]
  - SEPSIS [None]
  - UNEVALUABLE EVENT [None]
  - URINARY INCONTINENCE [None]
  - WOUND [None]
